FAERS Safety Report 8185062-0 (Version None)
Quarter: 2012Q1

REPORT INFORMATION
  Report Type: 
  Country: None (occurrence: None)
  Receive Date: 20120305
  Receipt Date: 20120229
  Transmission Date: 20120608
  Serious: Yes (Hospitalization, Other)
  Sender: FDA-Public Use
  Company Number: US-PFIZER INC-2012054407

PATIENT
  Sex: Female
  Weight: 74.376 kg

DRUGS (2)
  1. ENBREL [Suspect]
     Indication: RHEUMATOID ARTHRITIS
     Dosage: UNK
     Dates: start: 20030101, end: 20030101
  2. CELEBREX [Suspect]
     Indication: RHEUMATOID ARTHRITIS
     Dosage: 200 MG, DAILY
     Route: 048
     Dates: end: 20030101

REACTIONS (9)
  - OEDEMA PERIPHERAL [None]
  - URINARY TRACT INFECTION [None]
  - BACK PAIN [None]
  - MALAISE [None]
  - ARTHRALGIA [None]
  - FLUID RETENTION [None]
  - BURNING SENSATION [None]
  - JOINT SWELLING [None]
  - PAIN IN EXTREMITY [None]
